FAERS Safety Report 5061697-9 (Version None)
Quarter: 2006Q3

REPORT INFORMATION
  Report Type: 
  Country: None (occurrence: None)
  Receive Date: 20060720
  Receipt Date: 20060717
  Transmission Date: 20061208
  Serious: Yes (Other)
  Sender: FDA-Public Use
  Company Number: 111521ISR

PATIENT
  Age: 66 Year
  Sex: Male

DRUGS (1)
  1. FLUCONAZOLE [Suspect]
     Indication: ONYCHOMYCOSIS
     Dosage: 150 MILLIGRAM QW ORAL
     Route: 048
     Dates: start: 20060426, end: 20060621

REACTIONS (1)
  - ARTHRITIS [None]
